FAERS Safety Report 7727255-X (Version None)
Quarter: 2011Q3

REPORT INFORMATION
  Report Type: 
  Country: None (occurrence: None)
  Receive Date: 20110831
  Receipt Date: 20110816
  Transmission Date: 20111222
  Serious: Yes (Hospitalization, Other)
  Sender: FDA-Public Use
  Company Number: 2011MA012005

PATIENT
  Age: 10 Year
  Sex: Male

DRUGS (1)
  1. CARBAMAZEPINE [Suspect]
     Indication: CONVULSION

REACTIONS (9)
  - ECCHYMOSIS [None]
  - HAEMORRHAGE [None]
  - EPISTAXIS [None]
  - PURPURA [None]
  - THROMBOCYTOPENIA [None]
  - RASH ERYTHEMATOUS [None]
  - MEGAKARYOCYTES DECREASED [None]
  - HAEMOGLOBIN DECREASED [None]
  - PETECHIAE [None]
